FAERS Safety Report 7119717-3 (Version None)
Quarter: 2010Q4

REPORT INFORMATION
  Report Type: 
  Country: None (occurrence: None)
  Receive Date: 20101115
  Receipt Date: 20101104
  Transmission Date: 20110411
  Serious: Yes (Hospitalization)
  Sender: FDA-Public Use
  Company Number: 744063

PATIENT
  Age: 56 Year
  Sex: Male

DRUGS (4)
  1. METHOTREXATE [Suspect]
     Indication: URETERIC CANCER
  2. DOXORUBICIN HYDROCHLORIDE [Suspect]
     Indication: URETERIC CANCER
  3. CYCLOPHOSPHAMIDE [Suspect]
     Indication: URETERIC CANCER
  4. (ANTIEMETICS AND ANTINAUSEANTS) [Concomitant]

REACTIONS (6)
  - GASTRIC DISORDER [None]
  - MALIGNANT NEOPLASM PROGRESSION [None]
  - NAUSEA [None]
  - PNEUMATOSIS [None]
  - URETERIC CANCER [None]
  - VOMITING [None]
